FAERS Safety Report 10070366 (Version 1)
Quarter: 2014Q2

REPORT INFORMATION
  Report Type: Spontaneous
  Country: FR (occurrence: FR)
  Receive Date: 20140410
  Receipt Date: 20140410
  Transmission Date: 20141212
  Serious: Yes (Life-Threatening, Hospitalization, Other)
  Sender: FDA-Public Use
  Company Number: FR-PFIZER INC-2014096323

PATIENT
  Age: 53 Year
  Sex: Female

DRUGS (3)
  1. XANAX [Suspect]
     Dosage: 5 DF, DAILY
     Dates: end: 201310
  2. IMOVANE [Suspect]
     Dosage: UNK
     Route: 048
  3. SEROPLEX [Concomitant]
     Dosage: 1 DF, DAILY
     Route: 048

REACTIONS (6)
  - Coma [Recovered/Resolved]
  - Pneumonia aspiration [Recovered/Resolved]
  - Rhabdomyolysis [Recovered/Resolved]
  - Renal failure acute [Recovered/Resolved]
  - Cardiac failure [Recovered/Resolved]
  - Status epilepticus [Unknown]
